FAERS Safety Report 14023568 (Version 2)
Quarter: 2017Q4

REPORT INFORMATION
  Report Type: Spontaneous
  Country: JP (occurrence: JP)
  Receive Date: 20170929
  Receipt Date: 20171031
  Transmission Date: 20180321
  Serious: Yes (Death, Other)
  Sender: FDA-Public Use
  Company Number: JP-BAYER-2017-180401

PATIENT
  Age: 73 Year
  Sex: Male

DRUGS (1)
  1. STIVARGA [Suspect]
     Active Substance: REGORAFENIB
     Indication: HEPATOCELLULAR CARCINOMA
     Dosage: 120 MG, QD, 3 WEEKS ON THERAPY FOLLOWED BY 1 WEEK OFF
     Dates: start: 20170818, end: 20170907

REACTIONS (5)
  - C-reactive protein increased [Recovering/Resolving]
  - Ascites [Recovering/Resolving]
  - Blood creatinine increased [Not Recovered/Not Resolved]
  - Hepatocellular carcinoma [Fatal]
  - Arthralgia [Recovering/Resolving]

NARRATIVE: CASE EVENT DATE: 20170912
